FAERS Safety Report 7620445-6 (Version None)
Quarter: 2011Q3

REPORT INFORMATION
  Report Type: 
  Country: None (occurrence: None)
  Receive Date: 20110719
  Receipt Date: 20110707
  Transmission Date: 20111222
  Serious: Yes (Other)
  Sender: FDA-Public Use
  Company Number: PHHY2011US18334

PATIENT
  Sex: Female

DRUGS (1)
  1. HYPOTEARS DDPF [Suspect]
     Indication: DRY EYE
     Dosage: 15 ML, 3 OR 4 TIMES A DAY

REACTIONS (4)
  - MACULAR DEGENERATION [None]
  - EYE IRRITATION [None]
  - SUPERFICIAL INJURY OF EYE [None]
  - EYELID TUMOUR [None]
